FAERS Safety Report 4872076-9 (Version None)
Quarter: 2006Q1

REPORT INFORMATION
  Report Type: 
  Country: None (occurrence: None)
  Receive Date: 20060104
  Receipt Date: 20050818
  Transmission Date: 20060701
  Serious: Yes (Other)
  Sender: FDA-Public Use
  Company Number: PHNU2005DE02918

PATIENT
  Age: 70 Year
  Sex: Female
  Weight: 67 kg

DRUGS (4)
  1. ZOMETA [Suspect]
     Indication: METASTASES TO BONE
     Dosage: 4 MG, QMO
     Route: 042
     Dates: start: 20021101, end: 20050801
  2. NOVALGIN [Concomitant]
     Route: 065
     Dates: end: 20050701
  3. RADIOTHERAPY [Concomitant]
     Indication: METASTASES TO BONE
     Dosage: 30 IU, UNK
     Route: 061
     Dates: start: 20021204, end: 20021217
  4. IRON [Concomitant]
     Route: 048

REACTIONS (8)
  - DEVICE FAILURE [None]
  - GINGIVAL BLEEDING [None]
  - GINGIVAL RECESSION [None]
  - INFLAMMATION [None]
  - ORAL MUCOSAL DISORDER [None]
  - OSTEONECROSIS [None]
  - PERIODONTAL DISEASE [None]
  - TOOTH EXTRACTION [None]
